FAERS Safety Report 15685470 (Version 1)
Quarter: 2018Q4

REPORT INFORMATION
  Report Type: Spontaneous
  Country: US (occurrence: US)
  Receive Date: 20181204
  Receipt Date: 20181204
  Transmission Date: 20190205
  Serious: No
  Sender: FDA-Public Use
  Company Number: US-TEVA-2018-US-982109

PATIENT
  Age: 41 Year
  Sex: Female

DRUGS (4)
  1. CLONAZEPAM ACTAVIS [Suspect]
     Active Substance: CLONAZEPAM
     Indication: RESTLESS LEGS SYNDROME
  2. CLONAZEPAM SOLCO [Concomitant]
     Indication: SEIZURE
     Dosage: 1.5 MILLIGRAM DAILY;
     Route: 065
  3. CLONAZEPAM SOLCO [Concomitant]
     Indication: RESTLESS LEGS SYNDROME
  4. CLONAZEPAM ACTAVIS [Suspect]
     Active Substance: CLONAZEPAM
     Indication: SEIZURE
     Dosage: 1.5 MILLIGRAM DAILY;
     Route: 065

REACTIONS (6)
  - Drug ineffective [Unknown]
  - Adverse event [Unknown]
  - Somnolence [Unknown]
  - Depression [Unknown]
  - Product substitution issue [Unknown]
  - Tremor [Unknown]
